FAERS Safety Report 6383290-8 (Version None)
Quarter: 2009Q4

REPORT INFORMATION
  Report Type: 
  Country: None (occurrence: None)
  Receive Date: 20091001
  Receipt Date: 20090928
  Transmission Date: 20100525
  Serious: Yes (Other)
  Sender: FDA-Public Use
  Company Number: AU-RB-020104-09

PATIENT
  Sex: Male

DRUGS (1)
  1. SUBOXONE [Suspect]
     Dosage: 6-8 MG DAILY
     Route: 065
     Dates: start: 20060201

REACTIONS (1)
  - DRY EYE [None]
